FAERS Safety Report 7873023-8 (Version None)
Quarter: 2011Q4

REPORT INFORMATION
  Report Type: 
  Country: None (occurrence: None)
  Receive Date: 20111030
  Receipt Date: 20110429
  Transmission Date: 20120403
  Serious: No
  Sender: FDA-Public Use
  Company Number: US-AMGEN-USASP2011022398

PATIENT
  Sex: Female

DRUGS (1)
  1. ENBREL [Suspect]
     Indication: RHEUMATOID ARTHRITIS
     Dosage: 25 MG, 2 TIMES/WK
     Dates: start: 19990101

REACTIONS (9)
  - INJECTION SITE HAEMATOMA [None]
  - HYPERTENSION [None]
  - RHEUMATOID ARTHRITIS [None]
  - INJECTION SITE PAIN [None]
  - PYREXIA [None]
  - INJECTION SITE PRURITUS [None]
  - TOOTH INFECTION [None]
  - INJECTION SITE REACTION [None]
  - CYSTITIS [None]
